FAERS Safety Report 8815672 (Version 2)
Quarter: 2012Q4

REPORT INFORMATION
  Report Type: 
  Country: US (occurrence: US)
  Receive Date: 20120928
  Receipt Date: 20121017
  Transmission Date: 20130627
  Serious: No
  Sender: FDA-Public Use
  Company Number: US-TEVA-361368USA

PATIENT
  Sex: Female

DRUGS (5)
  1. PROAIR HFA [Suspect]
     Dosage: 270 Microgram Daily;
     Route: 055
  2. SPIRIVA [Concomitant]
  3. ADVAIR [Concomitant]
  4. ROSUVASTATIN [Concomitant]
     Dosage: 40 Milligram Daily;
  5. ALPRAZOLAM [Concomitant]
     Indication: ANXIETY

REACTIONS (1)
  - Underdose [Unknown]
